FAERS Safety Report 16852729 (Version 3)
Quarter: 2019Q4

REPORT INFORMATION
  Report Type: Spontaneous
  Country: US (occurrence: US)
  Receive Date: 20190925
  Receipt Date: 20191025
  Transmission Date: 20200122
  Serious: Yes (Hospitalization, Other)
  Sender: FDA-Public Use
  Company Number: US-GLAXOSMITHKLINE-US2019AMR173277

PATIENT
  Age: 61 Year
  Sex: Female

DRUGS (1)
  1. LAMICTAL XR [Suspect]
     Active Substance: LAMOTRIGINE
     Indication: SEIZURE
     Dosage: UNK
     Route: 065

REACTIONS (7)
  - Loss of consciousness [Unknown]
  - Hospitalisation [Unknown]
  - Drug ineffective [Unknown]
  - Thrombosis [Unknown]
  - Fall [Recovered/Resolved]
  - Foot fracture [Unknown]
  - Seizure [Unknown]

NARRATIVE: CASE EVENT DATE: 20190722
